FAERS Safety Report 19104009 (Version 1)
Quarter: 2021Q2

REPORT INFORMATION
  Report Type: Spontaneous
  Country: US (occurrence: US)
  Receive Date: 20210407
  Receipt Date: 20210407
  Transmission Date: 20210717
  Serious: No
  Sender: FDA-Public Use
  Company Number: US-BAYER-2021-117603

PATIENT
  Age: 56 Year
  Sex: Female

DRUGS (2)
  1. MIRALAX [Suspect]
     Active Substance: POLYETHYLENE GLYCOL 3350
     Indication: GASTROINTESTINAL DISORDER
     Dosage: I TAKE ABOUT A TABLE SPOON
     Route: 048
     Dates: start: 20210312, end: 20210404
  2. AMITRIPTYLINE [Concomitant]
     Active Substance: AMITRIPTYLINE

REACTIONS (4)
  - Incorrect dose administered [Unknown]
  - Product contamination physical [Unknown]
  - Nausea [None]
  - Prescribed underdose [Unknown]
